FAERS Safety Report 9459466 (Version 1)
Quarter: 2013Q3

REPORT INFORMATION
  Report Type: Report from Study
  Country: US (occurrence: US)
  Receive Date: 20130815
  Receipt Date: 20130815
  Transmission Date: 20140515
  Serious: Yes (Other)
  Sender: FDA-Public Use
  Company Number: US-JNJFOC-20130803927

PATIENT
  Age: 63 Year
  Sex: Male
  Weight: 95.26 kg

DRUGS (10)
  1. REMICADE [Suspect]
     Indication: RHEUMATOID ARTHRITIS
     Route: 042
     Dates: end: 201208
  2. REMICADE [Suspect]
     Indication: RHEUMATOID ARTHRITIS
     Dosage: DOSE: 7 VIALS
     Route: 042
     Dates: start: 20130617
  3. METHOTREXATE [Concomitant]
     Indication: RHEUMATOID ARTHRITIS
     Dosage: STARTED: 3 TO 4 YEARS AGO
     Route: 048
  4. BABY ASPIRIN [Concomitant]
     Indication: CARDIAC DISORDER
     Dosage: 3-4 YEARS DAILY; STARTED: 3 TO 4 YEARS AGO
     Route: 048
  5. FISH OIL [Concomitant]
     Indication: CARDIAC DISORDER
     Dosage: START DATE: 3 TO 4 YEARS AGO
     Route: 065
  6. POTASSIUM [Concomitant]
     Route: 065
  7. FENOFIBRATE [Concomitant]
     Indication: BLOOD CHOLESTEROL
     Route: 048
  8. PREDNISONE [Concomitant]
     Indication: RHEUMATOID ARTHRITIS
     Dosage: STARTED: 3 TO 4 YEARS AGO
     Route: 048
  9. XANAX [Concomitant]
     Route: 048
  10. JANUVIA [Concomitant]
     Indication: DIABETES MELLITUS
     Route: 065

REACTIONS (1)
  - Prostate cancer [Recovering/Resolving]
